FAERS Safety Report 15540559 (Version 1)
Quarter: 2018Q4

REPORT INFORMATION
  Report Type: Spontaneous
  Country: US (occurrence: US)
  Receive Date: 20181016
  Receipt Date: 20181016
  Transmission Date: 20190205
  Serious: Yes (Hospitalization, Other)
  Sender: FDA-Public Use
  Company Number: None

PATIENT
  Age: 73 Year
  Sex: Female
  Weight: 60.33 kg

DRUGS (1)
  1. RHOPRESSA [Suspect]
     Active Substance: NETARSUDIL MESYLATE
     Indication: GLAUCOMA
     Route: 047
     Dates: start: 20180927

REACTIONS (5)
  - Blood urine present [None]
  - Eye pruritus [None]
  - Ocular hyperaemia [None]
  - Eye irritation [None]
  - Madarosis [None]

NARRATIVE: CASE EVENT DATE: 20180927
